FAERS Safety Report 13700997 (Version 3)
Quarter: 2017Q3

REPORT INFORMATION
  Report Type: Spontaneous
  Country: NO (occurrence: NO)
  Receive Date: 20170629
  Receipt Date: 20170808
  Transmission Date: 20171127
  Serious: Yes (Other)
  Sender: FDA-Public Use
  Company Number: NO-HORIZON-PRO-0033-2017

PATIENT
  Age: 21 Year
  Sex: Male

DRUGS (6)
  1. CYSTADROPS [Concomitant]
  2. LEVAXIN [Concomitant]
     Active Substance: LEVOTHYROXINE SODIUM
  3. CELLCEPT [Concomitant]
     Active Substance: MYCOPHENOLATE MOFETIL\MYCOPHENOLATE MOFETIL HYDROCHLORIDE
  4. PROCYSBI DELAYED-RELEASE [Suspect]
     Active Substance: CYSTEAMINE BITARTRATE
     Indication: CYSTINOSIS
     Dosage: 675 MG BID
     Dates: start: 201601
  5. ADVAGRAF [Concomitant]
     Active Substance: TACROLIMUS
  6. ENALAPRIL [Concomitant]
     Active Substance: ENALAPRIL

REACTIONS (3)
  - Fibrosing colonopathy [Unknown]
  - Diarrhoea [Unknown]
  - Anal incontinence [Unknown]

NARRATIVE: CASE EVENT DATE: 201701
